FAERS Safety Report 11250622 (Version 1)
Quarter: 2015Q3

REPORT INFORMATION
  Report Type: Spontaneous
  Country: US (occurrence: US)
  Receive Date: 20150708
  Receipt Date: 20150708
  Transmission Date: 20151125
  Serious: Yes (Hospitalization)
  Sender: FDA-Public Use
  Company Number: US-ELI_LILLY_AND_COMPANY-US201102003533

PATIENT
  Age: 73 Year
  Sex: Female

DRUGS (2)
  1. ALIMTA [Suspect]
     Active Substance: PEMETREXED DISODIUM
     Indication: NON-SMALL CELL LUNG CANCER
     Dosage: 500 MG/M2, UNK
     Route: 042
     Dates: start: 20101110, end: 20110111
  2. AVASTIN [Concomitant]
     Active Substance: BEVACIZUMAB
     Indication: NON-SMALL CELL LUNG CANCER

REACTIONS (3)
  - Dehydration [Unknown]
  - Malaise [Unknown]
  - Cholecystitis [Unknown]
